FAERS Safety Report 5577797-0 (Version None)
Quarter: 2007Q4

REPORT INFORMATION
  Report Type: 
  Country: None (occurrence: None)
  Receive Date: 20071231
  Receipt Date: 20071221
  Transmission Date: 20080405
  Serious: Yes (Hospitalization)
  Sender: FDA-Public Use
  Company Number: PHHO2007GB20940

PATIENT
  Age: 82 Year
  Sex: Female
  Weight: 59 kg

DRUGS (2)
  1. MYCOPHENOLIC ACID [Suspect]
     Indication: LUNG TRANSPLANT
     Dosage: 1080 MG, BID
     Route: 048
     Dates: start: 20071122, end: 20071220
  2. NEORAL [Suspect]
     Indication: LUNG TRANSPLANT

REACTIONS (1)
  - CONVULSION [None]
